FAERS Safety Report 5505313-8 (Version None)
Quarter: 2007Q4

REPORT INFORMATION
  Report Type: 
  Country: None (occurrence: None)
  Receive Date: 20071102
  Receipt Date: 20071024
  Transmission Date: 20080405
  Serious: Yes (Other)
  Sender: FDA-Public Use
  Company Number: B0484467A

PATIENT
  Age: 61 Year
  Sex: Female
  Weight: 60.3 kg

DRUGS (15)
  1. AVANDIA [Suspect]
     Dates: start: 20060507, end: 20070315
  2. AMARYL [Concomitant]
     Dosage: 3MG PER DAY
  3. DIAFORMIN [Concomitant]
     Dosage: 1G THREE TIMES PER DAY
  4. FLUVAX [Concomitant]
     Dates: start: 20070327, end: 20070327
  5. TWINRIX [Concomitant]
     Dates: start: 20070810, end: 20070810
  6. TWINRIX [Concomitant]
     Dates: start: 20070913, end: 20070913
  7. ACIMAX [Concomitant]
     Dosage: 20MG AT NIGHT
     Route: 048
  8. AVAPRO [Concomitant]
     Indication: BLOOD PRESSURE
     Dosage: 150MG IN THE MORNING
  9. DAIVONEX [Concomitant]
     Indication: PSORIASIS
  10. GLIMEPIRIDE [Concomitant]
     Dosage: 3MG IN THE MORNING
  11. DYMADON [Concomitant]
     Indication: PAIN
  12. EGOCORT CREAM [Concomitant]
     Indication: DERMATITIS
  13. LESCOL [Concomitant]
     Dosage: 40MG AT NIGHT
  14. OROXINE [Concomitant]
  15. VAGIFEM [Concomitant]
     Dosage: 25MCG TWO TIMES PER WEEK

REACTIONS (2)
  - PAROTITIS [None]
  - SWELLING FACE [None]
